FAERS Safety Report 9993872 (Version 1)
Quarter: 2014Q1

REPORT INFORMATION
  Report Type: Spontaneous
  Country: US (occurrence: US)
  Receive Date: 20140310
  Receipt Date: 20140310
  Transmission Date: 20141002
  Serious: No
  Sender: FDA-Public Use
  Company Number: US-AMGEN-USASP2013046580

PATIENT
  Age: 83 Year
  Sex: Female

DRUGS (4)
  1. SENSIPAR [Suspect]
     Indication: HYPERPARATHYROIDISM SECONDARY
     Dosage: 90 MG, QD
     Dates: start: 201306
  2. RENAGEL                            /01459901/ [Concomitant]
  3. PLAVIX [Concomitant]
  4. PREVACID [Concomitant]

REACTIONS (2)
  - Blood parathyroid hormone decreased [Unknown]
  - Vomiting [Unknown]
